FAERS Safety Report 6414198-7 (Version None)
Quarter: 2009Q4

REPORT INFORMATION
  Report Type: 
  Country: None (occurrence: None)
  Receive Date: 20091026
  Receipt Date: 20091016
  Transmission Date: 20100525
  Serious: Yes (Life-Threatening)
  Sender: FDA-Public Use
  Company Number: PT-PFIZER INC-2009284232

PATIENT
  Age: 62 Year

DRUGS (4)
  1. ZARATOR [Suspect]
     Dosage: 20 MG, UNK
     Route: 048
     Dates: end: 20090828
  2. DIAZEPAM [Concomitant]
     Indication: DEPRESSION
     Dosage: UNK
     Dates: start: 20090608
  3. TRAMADOL HYDROCHLORIDE [Concomitant]
     Dosage: UNK
     Dates: start: 20070101
  4. VENLAFAXINE HYDROCHLORIDE [Concomitant]
     Indication: DEPRESSION
     Dosage: UNK
     Dates: start: 20090608, end: 20090918

REACTIONS (1)
  - HEPATITIS TOXIC [None]
